FAERS Safety Report 4922823-2 (Version None)
Quarter: 2006Q1

REPORT INFORMATION
  Report Type: 
  Country: None (occurrence: None)
  Receive Date: 20060224
  Receipt Date: 20050103
  Transmission Date: 20060701
  Serious: Yes (Hospitalization, Disabling)
  Sender: FDA-Public Use
  Company Number: DE-MERCK-0501DEU00204

PATIENT
  Age: 61 Year
  Sex: Female
  Weight: 95 kg

DRUGS (7)
  1. VIOXX [Suspect]
     Indication: ARTHRALGIA
     Route: 048
     Dates: start: 20011001, end: 20030101
  2. VIOXX [Suspect]
     Route: 048
     Dates: start: 20030101, end: 20040101
  3. VIOXX [Suspect]
     Route: 048
     Dates: start: 20030101, end: 20040101
  4. VIOXX [Suspect]
     Indication: BACK PAIN
     Route: 048
     Dates: start: 20011001, end: 20030101
  5. VIOXX [Suspect]
     Route: 048
     Dates: start: 20030101, end: 20040101
  6. VIOXX [Suspect]
     Route: 048
     Dates: start: 20030101, end: 20040101
  7. HYDROCHLOROTHIAZIDE AND RAMIPRIL [Concomitant]
     Indication: HYPERTENSION
     Route: 065
     Dates: start: 19940101

REACTIONS (19)
  - CARDIAC FAILURE [None]
  - CHOLELITHIASIS [None]
  - CORONARY ARTERY DISEASE [None]
  - DIABETES MELLITUS [None]
  - DYSPNOEA [None]
  - EXERCISE TOLERANCE DECREASED [None]
  - FATIGUE [None]
  - GOUT [None]
  - HELICOBACTER GASTRITIS [None]
  - HEPATIC STEATOSIS [None]
  - HYPERLIPIDAEMIA [None]
  - HYPERTENSION [None]
  - HYPERTENSIVE HEART DISEASE [None]
  - LIVER FUNCTION TEST ABNORMAL [None]
  - MYOCARDIAL INFARCTION [None]
  - NEPHROLITHIASIS [None]
  - OEDEMA PERIPHERAL [None]
  - PANCREATIC DISORDER [None]
  - TACHYCARDIA [None]
